FAERS Safety Report 9678059 (Version 1)
Quarter: 2013Q4

REPORT INFORMATION
  Report Type: Spontaneous
  Country: FR (occurrence: None)
  Receive Date: 20131106
  Receipt Date: 20131106
  Transmission Date: 20140711
  Serious: Yes (Other)
  Sender: FDA-Public Use
  Company Number: 1981184

PATIENT
  Age: 80 Year
  Sex: Female

DRUGS (13)
  1. (GEMCITABINE HYDROCHLORIDE) [Suspect]
     Indication: OVARIAN CANCER METASTATIC
     Dosage: NOT PRECISED
     Route: 041
     Dates: start: 20130523, end: 20130523
  2. (FILGRASTIM) [Concomitant]
  3. (SKENAN) [Concomitant]
  4. (TRIMEBUTINE) [Concomitant]
  5. (INEXIUM     /01479302/) [Concomitant]
  6. (TRANSIPED      /00754501/) [Concomitant]
  7. (IPRATROPIUM) [Concomitant]
  8. (TERBUTALINE) [Concomitant]
  9. (DEXERYL    /00557601/) [Concomitant]
  10. (ZOLPIDEM) [Concomitant]
  11. (DOMPERIDONE) [Concomitant]
  12. (PRIMOERAN) [Concomitant]
  13. AUGMENTIN     /00756801/) [Concomitant]

REACTIONS (2)
  - Pancytopenia [None]
  - Thrombocytopenia [None]
